FAERS Safety Report 6997418-X (Version None)
Quarter: 2010Q3

REPORT INFORMATION
  Report Type: 
  Country: None (occurrence: None)
  Receive Date: 20100918
  Receipt Date: 20091008
  Transmission Date: 20110219
  Serious: No
  Sender: FDA-Public Use
  Company Number: US-WYE-H11542709

PATIENT
  Age: 58 Year
  Sex: Female
  Weight: 45.4 kg

DRUGS (4)
  1. PRISTIQ [Suspect]
     Indication: DEPRESSION
     Route: 048
     Dates: start: 20090901, end: 20091004
  2. PRISTIQ [Suspect]
     Route: 048
     Dates: start: 20091005
  3. PROMETRIUM [Concomitant]
  4. CENESTIN [Concomitant]

REACTIONS (4)
  - BLOOD PRESSURE INCREASED [None]
  - DRUG INEFFECTIVE [None]
  - HEART RATE INCREASED [None]
  - UNEVALUABLE EVENT [None]
